FAERS Safety Report 4474569-5 (Version None)
Quarter: 2004Q4

REPORT INFORMATION
  Report Type: 
  Country: None (occurrence: None)
  Receive Date: 20041012
  Receipt Date: 20040930
  Transmission Date: 20050328
  Serious: Yes (Death, Hospitalization)
  Sender: FDA-Public Use
  Company Number: HQWYE452130SEP04

PATIENT
  Sex: Male

DRUGS (1)
  1. CORDARONE [Suspect]

REACTIONS (4)
  - COMA [None]
  - DRUG INTERACTION [None]
  - MULTIPLE DRUG OVERDOSE [None]
  - SUICIDE ATTEMPT [None]
